FAERS Safety Report 7832501-8 (Version None)
Quarter: 2011Q4

REPORT INFORMATION
  Report Type: 
  Country: None (occurrence: None)
  Receive Date: 20111024
  Receipt Date: 20111010
  Transmission Date: 20120403
  Serious: Yes (Hospitalization, Other)
  Sender: FDA-Public Use
  Company Number: GB-RANBAXY-2011R1-48663

PATIENT
  Sex: Female

DRUGS (5)
  1. FLOXACILLIN SODIUM [Interacting]
     Indication: SEPSIS
     Dosage: 500 MG, QID
     Route: 048
  2. FLOXACILLIN SODIUM [Interacting]
     Dosage: 1 G, QID
     Route: 065
  3. FLOXACILLIN SODIUM [Interacting]
     Dosage: 1 G, QID
     Route: 042
  4. ACETAMINOPHEN [Suspect]
     Indication: JOINT ARTHROPLASTY
     Dosage: 1000 MG, QID
     Route: 065
  5. CEFUROXIME [Concomitant]
     Indication: SEPSIS
     Dosage: UNK
     Route: 065

REACTIONS (3)
  - DRUG INTERACTION [None]
  - METABOLIC ACIDOSIS [None]
  - PYROGLUTAMATE INCREASED [None]
